FAERS Safety Report 9148588 (Version 1)
Quarter: 2013Q1

REPORT INFORMATION
  Report Type: Spontaneous
  Country: US (occurrence: None)
  Receive Date: 20130228
  Receipt Date: 20130228
  Transmission Date: 20140127
  Serious: No
  Sender: FDA-Public Use
  Company Number: None

PATIENT
  Sex: Male

DRUGS (1)
  1. XTANDI [Suspect]
     Route: 048
     Dates: start: 20120921, end: 20121022

REACTIONS (6)
  - Muscular weakness [None]
  - Dizziness [None]
  - Fall [None]
  - Metastases to bone [None]
  - Paraesthesia [None]
  - Pain in extremity [None]
